FAERS Safety Report 4821464-5 (Version None)
Quarter: 2005Q4

REPORT INFORMATION
  Report Type: 
  Country: None (occurrence: None)
  Receive Date: 20051107
  Receipt Date: 20051027
  Transmission Date: 20060501
  Serious: Yes (Hospitalization)
  Sender: FDA-Public Use
  Company Number: PHBS2005IT15854

PATIENT
  Age: 61 Year
  Sex: Female

DRUGS (2)
  1. VOLTAREN [Suspect]
     Indication: BACK PAIN
     Dosage: 75 MG/DAY
     Route: 030
     Dates: start: 20051002, end: 20051003
  2. ATENOLOL [Concomitant]
     Indication: HYPERTENSION
     Dosage: 50 MG/DAY
     Route: 048

REACTIONS (3)
  - OEDEMA [None]
  - OLIGURIA [None]
  - PULMONARY CONGESTION [None]
